FAERS Safety Report 11876792 (Version 1)
Quarter: 2015Q4

REPORT INFORMATION
  Report Type: Spontaneous
  Country: DE (occurrence: DE)
  Receive Date: 20151229
  Receipt Date: 20151229
  Transmission Date: 20160305
  Serious: Yes (Hospitalization)
  Sender: FDA-Public Use
  Company Number: DE-TEVA-621176GER

PATIENT
  Age: 49 Year
  Sex: Male
  Weight: 120 kg

DRUGS (5)
  1. CARBAMAZEPINE. [Suspect]
     Active Substance: CARBAMAZEPINE
     Indication: TRIGEMINAL NEURALGIA
     Dosage: 1-0-1
     Dates: end: 20151123
  2. BISOPROLOL [Concomitant]
     Active Substance: BISOPROLOL
     Dosage: 1-0-0
  3. DELIX [Concomitant]
     Active Substance: RAMIPRIL
     Dosage: 0-0-1
  4. DELIX PLUS 5 MG/25 MG [Concomitant]
     Dosage: 1-0-0
  5. SIMVA BASIC [Concomitant]
     Dosage: 0-0-1

REACTIONS (6)
  - Pruritus generalised [Unknown]
  - Dermatitis psoriasiform [Unknown]
  - Stomatitis [Unknown]
  - Angioedema [Unknown]
  - Rash generalised [Unknown]
  - General physical health deterioration [Unknown]

NARRATIVE: CASE EVENT DATE: 20151123
